FAERS Safety Report 4457916-X (Version None)
Quarter: 2004Q3

REPORT INFORMATION
  Report Type: 
  Country: None (occurrence: None)
  Receive Date: 20040917
  Receipt Date: 20040520
  Transmission Date: 20050211
  Serious: Yes (Hospitalization, Other)
  Sender: FDA-Public Use
  Company Number: US-JNJFOC-20040505190

PATIENT
  Age: 47 Year
  Sex: Female

DRUGS (2)
  1. TOPAMAX [Suspect]
     Indication: NECK PAIN
     Dosage: 25 MG, 1 IN 1DAY; 100 MG, 3 IN 1 DAY
     Dates: start: 20000101
  2. TOPAMAX [Suspect]
     Indication: NECK PAIN
     Dosage: 25 MG, 1 IN 1DAY; 100 MG, 3 IN 1 DAY
     Dates: start: 20040101

REACTIONS (2)
  - GRAND MAL CONVULSION [None]
  - PETIT MAL EPILEPSY [None]
